FAERS Safety Report 10723643 (Version 5)
Quarter: 2015Q2

REPORT INFORMATION
  Report Type: Report from Study
  Country: US (occurrence: US)
  Receive Date: 20150120
  Receipt Date: 20150428
  Transmission Date: 20150821
  Serious: Yes (Other)
  Sender: FDA-Public Use
  Company Number: US-SA-2015SA004279

PATIENT
  Age: 44 Year
  Sex: Male
  Weight: 95 kg

DRUGS (2)
  1. AUBAGIO [Suspect]
     Active Substance: TERIFLUNOMIDE
     Indication: MULTIPLE SCLEROSIS
     Route: 048
     Dates: start: 20140916
  2. AUBAGIO [Suspect]
     Active Substance: TERIFLUNOMIDE
     Indication: MULTIPLE SCLEROSIS
     Route: 048
     Dates: start: 20150203

REACTIONS (12)
  - Erythema [Unknown]
  - Disorientation [Unknown]
  - Temperature intolerance [Unknown]
  - Peripheral coldness [Unknown]
  - Herpes zoster [Unknown]
  - Fatigue [Unknown]
  - Influenza [Unknown]
  - Liver function test abnormal [Not Recovered/Not Resolved]
  - Burning sensation [Unknown]
  - Pain in extremity [Unknown]
  - Balance disorder [Unknown]
  - Pain [Unknown]

NARRATIVE: CASE EVENT DATE: 201501
